FAERS Safety Report 25895580 (Version 1)
Quarter: 2025Q4

REPORT INFORMATION
  Report Type: Spontaneous
  Country: US (occurrence: US)
  Receive Date: 20251008
  Receipt Date: 20251008
  Transmission Date: 20260117
  Serious: No
  Sender: MERCK SHARP & DOHME LLC
  Company Number: US-009507513-2330343

PATIENT
  Sex: Female

DRUGS (21)
  1. SOTATERCEPT [Suspect]
     Active Substance: SOTATERCEPT
     Indication: Product used for unknown indication
  2. SOTATERCEPT [Suspect]
     Active Substance: SOTATERCEPT
  3. SOTATERCEPT [Suspect]
     Active Substance: SOTATERCEPT
  4. SOTATERCEPT [Suspect]
     Active Substance: SOTATERCEPT
  5. REMODULIN [Suspect]
     Active Substance: TREPROSTINIL
     Indication: Pulmonary arterial hypertension
     Dosage: 0.016 UG/KG, CONTINUING, STRENGTH: 2.5 MG/ML
     Route: 041
     Dates: start: 2025
  6. REMODULIN [Suspect]
     Active Substance: TREPROSTINIL
     Indication: Pulmonary arterial hypertension
     Dosage: 0.018 UG/KG, CONTINUING, STRENGTH: 2.5 MG/ML
     Route: 041
     Dates: start: 2025
  7. REMODULIN [Suspect]
     Active Substance: TREPROSTINIL
     Indication: Pulmonary arterial hypertension
     Dosage: 0.020 UG/KG, CONTINUING, STRENGTH: 2.5 MG/ML
     Route: 041
     Dates: start: 2025
  8. REMODULIN [Suspect]
     Active Substance: TREPROSTINIL
     Indication: Pulmonary arterial hypertension
     Dosage: 0.022 UG/KG, CONTINUING, STRENGTH: 2.5 MG/ML
     Route: 041
     Dates: start: 2025
  9. REMODULIN [Suspect]
     Active Substance: TREPROSTINIL
     Indication: Pulmonary arterial hypertension
     Dosage: 0.024 UG/KG, CONTINUING, STRENGTH: 2.5 MG/ML
     Route: 041
     Dates: start: 2025
  10. REMODULIN [Suspect]
     Active Substance: TREPROSTINIL
     Indication: Pulmonary arterial hypertension
     Dosage: 0.028 UG/KG, CONTINUING, STRENGTH: 2.5 MG/ML
     Route: 041
     Dates: start: 2025
  11. REMODULIN [Suspect]
     Active Substance: TREPROSTINIL
     Indication: Pulmonary arterial hypertension
     Dosage: 0.030 UG/KG, CONTINUING, STRENGTH: 2.5 MG/ML
     Route: 041
     Dates: start: 2025
  12. REMODULIN [Suspect]
     Active Substance: TREPROSTINIL
     Indication: Pulmonary arterial hypertension
     Dosage: 0.034 UG/KG, CONTINUING, STRENGTH: 2.5 MG/ML
     Route: 041
     Dates: start: 2025
  13. REMODULIN [Suspect]
     Active Substance: TREPROSTINIL
     Indication: Pulmonary arterial hypertension
     Dosage: 0.036 UG/KG, CONTINUING, STRENGTH: 2.5 MG/ML
     Route: 041
     Dates: start: 2025
  14. REMODULIN [Suspect]
     Active Substance: TREPROSTINIL
     Indication: Pulmonary arterial hypertension
     Dosage: 0.046 UG/KG, CONTINUING, STRENGTH: 2.5 MG/ML
     Route: 041
     Dates: start: 2025
  15. REMODULIN [Suspect]
     Active Substance: TREPROSTINIL
     Indication: Pulmonary arterial hypertension
     Dosage: 0.056 UG/KG, CONTINUING, STRENGTH: 2.5 MG/ML
     Route: 041
     Dates: start: 2025
  16. REMODULIN [Suspect]
     Active Substance: TREPROSTINIL
     Indication: Pulmonary arterial hypertension
     Dosage: CONTINUING, STRENGTH: 2.5 MG/ML
     Route: 041
     Dates: start: 202503
  17. UPTRAVI [Concomitant]
     Active Substance: SELEXIPAG
  18. ONDANSETRON [Concomitant]
     Active Substance: ONDANSETRON
  19. CHLORHEXIDINE GLUCONATE [Concomitant]
     Active Substance: CHLORHEXIDINE GLUCONATE
  20. TADALAFIL [Concomitant]
     Active Substance: TADALAFIL
  21. IMODIUM [Concomitant]
     Active Substance: LOPERAMIDE HYDROCHLORIDE

REACTIONS (1)
  - Oedema [Unknown]

NARRATIVE: CASE EVENT DATE: 20250101
